FAERS Safety Report 16752431 (Version 1)
Quarter: 2019Q3

REPORT INFORMATION
  Report Type: Spontaneous
  Country: CA (occurrence: CA)
  Receive Date: 20190828
  Receipt Date: 20190828
  Transmission Date: 20191005
  Serious: Yes (Other)
  Sender: FDA-Public Use
  Company Number: CA-TEVA-2019-CA-1099366

PATIENT
  Age: 74 Year
  Sex: Male

DRUGS (19)
  1. IBRUTINIB [Suspect]
     Active Substance: IBRUTINIB
     Indication: PRODUCT USED FOR UNKNOWN INDICATION
     Route: 065
  2. RITUXAN [Suspect]
     Active Substance: RITUXIMAB
     Indication: CHRONIC LYMPHOCYTIC LEUKAEMIA
     Route: 065
  3. ALFUZOSIN [Concomitant]
     Active Substance: ALFUZOSIN
  4. RITUXAN [Suspect]
     Active Substance: RITUXIMAB
     Indication: AUTOIMMUNE HAEMOLYTIC ANAEMIA
     Route: 042
  5. LYRICA [Concomitant]
     Active Substance: PREGABALIN
  6. METONIA [Concomitant]
     Active Substance: METOCLOPRAMIDE
  7. VIT. B COMPLEX [Concomitant]
  8. CODEINE [Concomitant]
     Active Substance: CODEINE
  9. PREDNISONE. [Concomitant]
     Active Substance: PREDNISONE
  10. TRANEXAMIC ACID. [Concomitant]
     Active Substance: TRANEXAMIC ACID
  11. GABAPENTIN. [Concomitant]
     Active Substance: GABAPENTIN
  12. PANTOPRAZOLE [Concomitant]
     Active Substance: PANTOPRAZOLE
  13. SENNA [SENNOSIDE A+B] [Concomitant]
  14. MERCAPTOPURINE. [Suspect]
     Active Substance: MERCAPTOPURINE
     Indication: PRODUCT USED FOR UNKNOWN INDICATION
     Route: 065
  15. ACYCLOVIR. [Concomitant]
     Active Substance: ACYCLOVIR
  16. MORPHINE SULFATE. [Suspect]
     Active Substance: MORPHINE SULFATE
     Indication: PRODUCT USED FOR UNKNOWN INDICATION
     Route: 065
  17. NORTRIPTYLINE HYDROCHLORIDE. [Concomitant]
     Active Substance: NORTRIPTYLINE HYDROCHLORIDE
  18. LOZIDE [GLICLAZIDE] [Concomitant]
  19. SPIRONOLACTONE. [Concomitant]
     Active Substance: SPIRONOLACTONE

REACTIONS (10)
  - Drug hypersensitivity [Not Recovered/Not Resolved]
  - Haemorrhage [Not Recovered/Not Resolved]
  - Blood disorder [Not Recovered/Not Resolved]
  - Constipation [Not Recovered/Not Resolved]
  - Herpes zoster [Not Recovered/Not Resolved]
  - Contusion [Not Recovered/Not Resolved]
  - Dermatitis contact [Not Recovered/Not Resolved]
  - Platelet count decreased [Not Recovered/Not Resolved]
  - Haemoglobin decreased [Not Recovered/Not Resolved]
  - Myelodysplastic syndrome [Not Recovered/Not Resolved]
